FAERS Safety Report 15814346 (Version 4)
Quarter: 2019Q2

REPORT INFORMATION
  Report Type: Spontaneous
  Country: DK (occurrence: DK)
  Receive Date: 20190111
  Receipt Date: 20190416
  Transmission Date: 20190711
  Serious: Yes (Death, Hospitalization, Other)
  Sender: FDA-Public Use
  Company Number: DK-009507513-2011SP051883

PATIENT
  Age: 72 Year
  Sex: Female
  Weight: 103 kg

DRUGS (13)
  1. ZELDOX [Suspect]
     Active Substance: ZIPRASIDONE
     Indication: SCHIZOAFFECTIVE DISORDER
     Dosage: 80 MG, QD
     Route: 048
     Dates: end: 20111023
  2. ALPRAZOLAM. [Concomitant]
     Active Substance: ALPRAZOLAM
     Dosage: UNK
     Route: 065
  3. MIRTAZAPINE. [Suspect]
     Active Substance: MIRTAZAPINE
     Indication: DEPRESSION
     Dosage: UNK
  4. ALPRAZOLAM. [Concomitant]
     Active Substance: ALPRAZOLAM
     Dosage: 0.5 MG, DAILY
     Dates: end: 20111023
  5. AMLODIPIN ACTAVIS (AMLODIPINE MALEATE) [Concomitant]
     Active Substance: AMLODIPINE MALEATE
     Indication: PRODUCT USED FOR UNKNOWN INDICATION
  6. CIPRALEX [Suspect]
     Active Substance: ESCITALOPRAM OXALATE
     Indication: SCHIZOAFFECTIVE DISORDER
     Dosage: 30 MG, QD (DAILY DOSE OF 1 TABLET IN THE MORNING AND 1.5 TABLET IN THE EVENING)
     Route: 048
     Dates: end: 20111023
  7. LITAREX (LITHIUM CITRATE) [Suspect]
     Active Substance: LITHIUM CITRATE
     Indication: SCHIZOAFFECTIVE DISORDER
     Dosage: 1 DF (IN THE MORNING)
     Route: 048
     Dates: start: 2005, end: 20111023
  8. LITAREX (LITHIUM CITRATE) [Suspect]
     Active Substance: LITHIUM CITRATE
     Dosage: 1.5 DF (IN THE EVENING)
     Route: 048
     Dates: end: 20111023
  9. FRAGMIN [Concomitant]
     Active Substance: DALTEPARIN SODIUM
     Indication: PRODUCT USED FOR UNKNOWN INDICATION
     Dosage: UNK
  10. MIRTAZAPINE. [Suspect]
     Active Substance: MIRTAZAPINE
     Indication: SCHIZOAFFECTIVE DISORDER
     Dosage: 30 MG, QD
     Route: 048
     Dates: start: 2011, end: 20111023
  11. ALPRAZOLAM. [Concomitant]
     Active Substance: ALPRAZOLAM
     Indication: PRODUCT USED FOR UNKNOWN INDICATION
     Dosage: 0.5 MG, QD
     Dates: end: 20111022
  12. CENTYL MED KALIUMKLORID [Concomitant]
     Active Substance: BENDROFLUMETHIAZIDE\POTASSIUM CHLORIDE
     Indication: PRODUCT USED FOR UNKNOWN INDICATION
     Dosage: 1 DOSAGE FORM, QD
     Route: 065
     Dates: end: 20111023
  13. FERRO DURETTER [Concomitant]
     Indication: PRODUCT USED FOR UNKNOWN INDICATION
     Dosage: 100 MG QD
     Route: 065
     Dates: end: 20111023

REACTIONS (27)
  - Renal failure [Fatal]
  - Lacunar infarction [Fatal]
  - Hypertension [Not Recovered/Not Resolved]
  - Off label use [Unknown]
  - Cardiac hypertrophy [Fatal]
  - Hyperventilation [Fatal]
  - Constipation [Fatal]
  - Depressed level of consciousness [Unknown]
  - Lactic acidosis [Fatal]
  - Urinary tract infection [Fatal]
  - Hepatic cirrhosis [Fatal]
  - Neuroleptic malignant syndrome [Fatal]
  - Fall [Recovered/Resolved]
  - Humerus fracture [Not Recovered/Not Resolved]
  - Hyperdynamic left ventricle [Unknown]
  - Liver disorder [Unknown]
  - Rhabdomyolysis [Fatal]
  - Myocardial infarction [Unknown]
  - Pyrexia [Fatal]
  - Acute kidney injury [Fatal]
  - Blood creatine phosphokinase increased [Unknown]
  - Hepatic enzyme increased [Unknown]
  - Myoglobin blood increased [Unknown]
  - Confusional state [Recovered/Resolved]
  - Dyspnoea [Not Recovered/Not Resolved]
  - Organ failure [Fatal]
  - Internal fixation of fracture [Unknown]

NARRATIVE: CASE EVENT DATE: 20111021
